FAERS Safety Report 6812604-7 (Version None)
Quarter: 2010Q3

REPORT INFORMATION
  Report Type: 
  Country: None (occurrence: None)
  Receive Date: 20100701
  Receipt Date: 20100622
  Transmission Date: 20110219
  Serious: Yes (Other)
  Sender: FDA-Public Use
  Company Number: US-PFIZER INC-2010078233

PATIENT
  Sex: Male
  Weight: 68.027 kg

DRUGS (3)
  1. CHANTIX [Suspect]
     Indication: SMOKING CESSATION THERAPY
     Dosage: 0.5 MG, 1X/DAY
     Route: 048
     Dates: start: 20100524, end: 20100101
  2. CHANTIX [Suspect]
     Dosage: UNK MG, 2X/DAY
     Route: 048
     Dates: start: 20100101, end: 20100601
  3. ATRIPLA [Concomitant]
     Indication: HIV INFECTION
     Dosage: [EFAVIRENZ 600 MG] / [EMTRICITABINE 200 MG] / [TENOFOVIR 300 MG], 1X/DAY
     Route: 048

REACTIONS (7)
  - ABNORMAL BEHAVIOUR [None]
  - ANGER [None]
  - CONFUSIONAL STATE [None]
  - DEPRESSION [None]
  - MANIA [None]
  - MEMORY IMPAIRMENT [None]
  - MENTAL DISORDER [None]
